FAERS Safety Report 7093166-9 (Version None)
Quarter: 2010Q4

REPORT INFORMATION
  Report Type: 
  Country: None (occurrence: None)
  Receive Date: 20101110
  Receipt Date: 20080917
  Transmission Date: 20110411
  Serious: No
  Sender: FDA-Public Use
  Company Number: US-KINGPHARMUSA00001-K200801091

PATIENT
  Age: 21 Year
  Sex: Female
  Weight: 56.689 kg

DRUGS (1)
  1. SEPTRA [Suspect]
     Indication: ACNE
     Dosage: UNK, BID
     Route: 048
     Dates: start: 20071201

REACTIONS (1)
  - TOOTH DISCOLOURATION [None]
